FAERS Safety Report 16766851 (Version 7)
Quarter: 2022Q4

REPORT INFORMATION
  Report Type: Spontaneous
  Country: US (occurrence: US)
  Receive Date: 20190903
  Receipt Date: 20221208
  Transmission Date: 20230113
  Serious: Yes (Hospitalization)
  Sender: FDA-Public Use
  Company Number: US-PFIZER INC-2019374923

PATIENT
  Age: 63 Year
  Sex: Female
  Weight: 133.81 kg

DRUGS (8)
  1. IBRANCE [Suspect]
     Active Substance: PALBOCICLIB
     Indication: Breast cancer female
     Dosage: 100 MG, DAILY
     Route: 048
     Dates: end: 202103
  2. IBRANCE [Suspect]
     Active Substance: PALBOCICLIB
     Indication: Breast cancer female
     Dosage: 75 MG
  3. CITALOPRAM [Suspect]
     Active Substance: CITALOPRAM HYDROBROMIDE
     Indication: Antidepressant therapy
     Dosage: UNK
     Dates: end: 202103
  4. ANASTROZOLE [Concomitant]
     Active Substance: ANASTROZOLE
     Indication: Neoplasm malignant
     Dosage: 1MG, AT NIGHT
  5. SYNTHROID [Concomitant]
     Active Substance: LEVOTHYROXINE SODIUM
     Indication: Thyroid disorder
     Dosage: 200MG, 1 DAILY MONDAY-FRIDAY, 2 DAILY ON SATURDAY AND SUNDAY
  6. B12 1000 SR [Concomitant]
     Indication: Arthralgia
     Dosage: 1000 IU, DAILY
  7. GINGER, TUMERIC + BROMELAIN [Concomitant]
     Indication: Arthralgia
     Dosage: 500 MG, 2X/DAY
  8. VITAMIN D3 [Concomitant]
     Active Substance: CHOLECALCIFEROL
     Indication: Bone pain
     Dosage: 1000 IU, DAILY

REACTIONS (3)
  - Cardiac disorder [Unknown]
  - Gait disturbance [Unknown]
  - Neoplasm progression [Unknown]
